FAERS Safety Report 9630583 (Version 1)
Quarter: 2013Q4

REPORT INFORMATION
  Report Type: Spontaneous
  Country: US (occurrence: None)
  Receive Date: 20131016
  Receipt Date: 20131016
  Transmission Date: 20140711
  Serious: Yes (Death)
  Sender: FDA-Public Use
  Company Number: 2013P1020138

PATIENT
  Age: 75 Year
  Sex: Female

DRUGS (3)
  1. DIGOXIN [Suspect]
  2. ROSIGLITAZONE MALEATE [Suspect]
  3. CARVEDILOL [Suspect]

REACTIONS (1)
  - Intracranial aneurysm [None]
